FAERS Safety Report 23108346 (Version 1)
Quarter: 2023Q4

REPORT INFORMATION
  Report Type: Spontaneous
  Country: US (occurrence: US)
  Receive Date: 20231026
  Receipt Date: 20231026
  Transmission Date: 20240110
  Serious: Yes (Life-Threatening, Hospitalization, Other)
  Sender: FDA-Public Use
  Company Number: US-MLMSERVICE-20231005-4591199-1

PATIENT
  Age: 25 Year
  Sex: Female

DRUGS (3)
  1. FENTANYL [Suspect]
     Active Substance: FENTANYL\FENTANYL CITRATE
     Indication: Product used for unknown indication
     Dosage: UNKNOWN
     Route: 065
  2. OXYCODONE [Suspect]
     Active Substance: OXYCODONE
     Indication: Product used for unknown indication
     Dosage: UNKNOWN
     Route: 065
  3. GABAPENTIN [Concomitant]
     Active Substance: GABAPENTIN
     Indication: Product used for unknown indication
     Dosage: UNKNOWN
     Route: 065

REACTIONS (12)
  - Deep vein thrombosis [Unknown]
  - Pneumothorax [Unknown]
  - Pneumonia [Unknown]
  - Pharyngeal abscess [Unknown]
  - Acute respiratory distress syndrome [Unknown]
  - Septic shock [Unknown]
  - Respiratory failure [Unknown]
  - Lung infiltration [Unknown]
  - Streptococcal infection [Unknown]
  - Overdose [Unknown]
  - Syncope [Unknown]
  - Maternal exposure during pregnancy [Recovered/Resolved]
